FAERS Safety Report 22200452 (Version 2)
Quarter: 2023Q2

REPORT INFORMATION
  Report Type: Spontaneous
  Country: DE (occurrence: DE)
  Receive Date: 20230412
  Receipt Date: 20230515
  Transmission Date: 20230722
  Serious: Yes (Hospitalization, Other)
  Sender: FDA-Public Use
  Company Number: DE-002147023-NVSC2023DE066053

PATIENT
  Sex: Female
  Weight: 62 kg

DRUGS (6)
  1. EXEMESTANE [Suspect]
     Active Substance: EXEMESTANE
     Indication: Hormone receptor positive HER2 negative breast cancer
     Dosage: 25 MILLIGRAM, ONCE A DAY (25 MG, QD (DAILY DOSE)
     Route: 048
     Dates: start: 20200525, end: 20200716
  2. FULVESTRANT [Suspect]
     Active Substance: FULVESTRANT
     Indication: Hormone receptor positive HER2 negative breast cancer
     Dosage: 500 MILLIGRAM (1 EVERY MONTH)((500 MG, QMO (DAILY DOSE)
     Route: 030
     Dates: start: 20200224, end: 20200322
  3. FULVESTRANT [Suspect]
     Active Substance: FULVESTRANT
     Dosage: 300 MILLIGRAM (1 EVERY MONTH)((300 MG, QMO (DAILY DOSE)
     Route: 030
     Dates: start: 20200323, end: 20200323
  4. FULVESTRANT [Suspect]
     Active Substance: FULVESTRANT
     Dosage: 500 MILLIGRAM (1 EVERY MONTH)((500 MG, QMO (DAILY DOSE)
     Route: 030
     Dates: start: 20200324, end: 20200415
  5. KISQALI [Suspect]
     Active Substance: RIBOCICLIB
     Indication: Hormone receptor positive HER2 negative breast cancer
     Dosage: 600 MILLIGRAM, ONCE A DAY (DAILY DOSE) (SCHEMA 21 DAYS INTAKE, 7 DAYS PAUSE)
     Route: 048
     Dates: start: 20200225, end: 20200423
  6. KISQALI [Suspect]
     Active Substance: RIBOCICLIB
     Dosage: 600 MILLIGRAM, ONCE A DAY (DAILY DOSE) (SCHEMA 21 DAYS INTAKE, 7 DAYS PAUSE)
     Route: 048
     Dates: start: 20200508, end: 20200526

REACTIONS (3)
  - Hip fracture [Recovered/Resolved]
  - Arthralgia [Recovered/Resolved]
  - Product dose omission issue [Unknown]

NARRATIVE: CASE EVENT DATE: 20210914
